FAERS Safety Report 21097216 (Version 6)
Quarter: 2022Q4

REPORT INFORMATION
  Report Type: Spontaneous
  Country: US (occurrence: US)
  Receive Date: 20220719
  Receipt Date: 20221229
  Transmission Date: 20230113
  Serious: No
  Sender: FDA-Public Use
  Company Number: US-GLAXOSMITHKLINE-US2022AMR104909

PATIENT
  Sex: Female

DRUGS (4)
  1. ZEJULA [Suspect]
     Active Substance: NIRAPARIB
     Indication: Ovarian cancer
     Dosage: 200 MG, QD
     Dates: start: 20220624
  2. ZEJULA [Suspect]
     Active Substance: NIRAPARIB
     Dosage: 200 MG, QD
  3. ZEJULA [Suspect]
     Active Substance: NIRAPARIB
     Dosage: 200 MG, QD
  4. ZEJULA [Suspect]
     Active Substance: NIRAPARIB
     Dosage: 200 MG, QD

REACTIONS (11)
  - Mean cell volume decreased [Unknown]
  - Platelet count decreased [Unknown]
  - Social avoidant behaviour [Unknown]
  - Constipation [Not Recovered/Not Resolved]
  - Emotional distress [Unknown]
  - Blood pressure increased [Not Recovered/Not Resolved]
  - Decreased activity [Unknown]
  - Skin discolouration [Not Recovered/Not Resolved]
  - Fatigue [Unknown]
  - Flatulence [Unknown]
  - Product dose omission issue [Unknown]
